FAERS Safety Report 16924111 (Version 1)
Quarter: 2019Q4

REPORT INFORMATION
  Report Type: Spontaneous
  Country: CH (occurrence: CH)
  Receive Date: 20191016
  Receipt Date: 20191016
  Transmission Date: 20200122
  Serious: Yes (Other)
  Sender: FDA-Public Use
  Company Number: CH-PFIZER INC-2019438682

PATIENT
  Age: 73 Year
  Sex: Female

DRUGS (8)
  1. ADEMPAS [Concomitant]
     Active Substance: RIOCIGUAT
  2. ORENCIA [Suspect]
     Active Substance: ABATACEPT
     Indication: RHEUMATOID ARTHRITIS
     Dosage: UNK UNK, MONTHLY (EVERY FOUR WEEKS ORENCIA INFUSIONS)
     Route: 042
  3. TOREM [TORASEMIDE SODIUM] [Concomitant]
  4. SALAZOPYRIN [Suspect]
     Active Substance: SULFASALAZINE
     Indication: RHEUMATOID ARTHRITIS
     Dosage: 500 MG, 2X/DAY
  5. XARELTO [Concomitant]
     Active Substance: RIVAROXABAN
  6. ALLOPUR [Concomitant]
     Active Substance: ALLOPURINOL
  7. ALDACTONE [Concomitant]
     Active Substance: SPIRONOLACTONE
  8. SORTIS [Concomitant]
     Active Substance: ATORVASTATIN

REACTIONS (1)
  - Cutaneous lymphoma [Unknown]

NARRATIVE: CASE EVENT DATE: 2019
